FAERS Safety Report 13594360 (Version 1)
Quarter: 2017Q2

REPORT INFORMATION
  Report Type: Spontaneous
  Country: FR (occurrence: FR)
  Receive Date: 20170530
  Receipt Date: 20170530
  Transmission Date: 20170830
  Serious: Yes (Other)
  Sender: FDA-Public Use
  Company Number: FR-AUROBINDO-AUR-APL-2017-34644

PATIENT
  Age: 19 Year
  Sex: Male

DRUGS (4)
  1. TERCIAN                            /00759301/ [Suspect]
     Active Substance: CYAMEMAZINE
     Indication: PRODUCT USED FOR UNKNOWN INDICATION
     Dosage: 1.5 DF, DAILY
     Route: 048
     Dates: start: 20170321, end: 20170427
  2. CONCERTA LP [Suspect]
     Active Substance: METHYLPHENIDATE HYDROCHLORIDE
     Dosage: 2 TABLETS OF 18 MG /DAY
     Route: 048
  3. CONCERTA LP [Suspect]
     Active Substance: METHYLPHENIDATE HYDROCHLORIDE
     Indication: ATTENTION DEFICIT/HYPERACTIVITY DISORDER
     Dosage: ONE TABLET PER DAY
     Route: 048
     Dates: start: 20170418, end: 20170427
  4. HYDROXYZINE ARROW FILM-COATED TABLET [Suspect]
     Active Substance: HYDROXYZINE HYDROCHLORIDE
     Dosage: 2 DOSAGES FORMS, 3 DAYS
     Route: 048

REACTIONS (1)
  - Opisthotonus [Recovered/Resolved]

NARRATIVE: CASE EVENT DATE: 20170427
